FAERS Safety Report 7988118-8 (Version None)
Quarter: 2011Q4

REPORT INFORMATION
  Report Type: 
  Country: None (occurrence: None)
  Receive Date: 20111216
  Receipt Date: 20111209
  Transmission Date: 20120403
  Serious: Yes (Hospitalization)
  Sender: FDA-Public Use
  Company Number: DE-UCBSA-047493

PATIENT
  Age: 58 Year
  Sex: Female
  Weight: 58 kg

DRUGS (5)
  1. TOPIRAMATE [Concomitant]
     Indication: EPILEPSY
     Route: 048
     Dates: start: 20060401
  2. PROPRANOLOL [Concomitant]
     Indication: HYPERTENSION
     Route: 048
     Dates: start: 20040101
  3. VIMPAT [Suspect]
     Indication: EPILEPSY
     Route: 048
     Dates: start: 20101110, end: 20101129
  4. OXCARBAZEPINE [Concomitant]
     Indication: EPILEPSY
     Dosage: 300 MG BID AND 900 MG OD
     Route: 048
     Dates: start: 20070601, end: 20101129
  5. OXCARBAZEPINE [Concomitant]
     Dosage: 600 MG OD AND 450 MG OD
     Route: 048
     Dates: start: 20101130, end: 20101207

REACTIONS (1)
  - HYPONATRAEMIA [None]
